FAERS Safety Report 18551955 (Version 2)
Quarter: 2021Q2

REPORT INFORMATION
  Report Type: Other
  Country: KR (occurrence: KR)
  Receive Date: 20201126
  Receipt Date: 20210605
  Transmission Date: 20210717
  Serious: Yes (Other)
  Sender: FDA-Public Use
  Company Number: KR-ROCHE-2717813

PATIENT
  Age: 61 Year
  Sex: Male
  Weight: 55 kg

DRUGS (3)
  1. PROPAFENONE. [Concomitant]
     Active Substance: PROPAFENONE
     Indication: ATRIAL FIBRILLATION
     Dates: start: 20201016
  2. ATEZOLIZUMAB. [Suspect]
     Active Substance: ATEZOLIZUMAB
     Indication: NON-SMALL CELL LUNG CANCER
     Dosage: ON 17/NOV/2020, RECEIVED MOST RECENT DOSE
     Route: 041
     Dates: start: 20201030
  3. FLAVINE ADENINE DINUCLEOTIDE [Concomitant]
     Dates: start: 20201127

REACTIONS (3)
  - Alanine aminotransferase increased [Recovered/Resolved]
  - Hepatic failure [Not Recovered/Not Resolved]
  - Aspartate aminotransferase increased [Recovered/Resolved]

NARRATIVE: CASE EVENT DATE: 20201105
